FAERS Safety Report 17952090 (Version 1)
Quarter: 2020Q2

REPORT INFORMATION
  Report Type: Spontaneous
  Country: DE (occurrence: DE)
  Receive Date: 20200626
  Receipt Date: 20200626
  Transmission Date: 20200714
  Serious: Yes (Death, Hospitalization)
  Sender: FDA-Public Use
  Company Number: NVSC2020DE179345

PATIENT
  Age: 82 Year
  Sex: Male
  Weight: 92.6 kg

DRUGS (2)
  1. DOCETAXEL. [Suspect]
     Active Substance: DOCETAXEL
     Indication: LUNG ADENOCARCINOMA
     Dosage: 1 OT, QD (LIQUIDDAILY DOSE: 75MG/M2 BODY SURFACE AREA)
     Route: 042
     Dates: start: 20200207
  2. VARGATEF [Suspect]
     Active Substance: NINTEDANIB
     Indication: LUNG ADENOCARCINOMA
     Dosage: 400 MG, QD
     Route: 048
     Dates: start: 20200208, end: 20200319

REACTIONS (9)
  - Pneumonia [Fatal]
  - White blood cell count decreased [Recovered/Resolved]
  - White blood cell count decreased [Fatal]
  - Malignant neoplasm progression [Fatal]
  - Pyrexia [Recovered/Resolved]
  - White blood cell count decreased [Fatal]
  - Diarrhoea [Recovered/Resolved]
  - Pneumonia [Fatal]
  - Nausea [Recovered/Resolved]

NARRATIVE: CASE EVENT DATE: 20200209
